FAERS Safety Report 9989117 (Version 2)
Quarter: 2014Q1

REPORT INFORMATION
  Report Type: Report from Study
  Country: PR (occurrence: PR)
  Receive Date: 20140310
  Receipt Date: 20140310
  Transmission Date: 20141002
  Serious: No
  Sender: FDA-Public Use
  Company Number: PR-ABBVIE-13P-131-1103250-00

PATIENT
  Age: 56 Year
  Sex: Female
  Weight: 61.29 kg

DRUGS (3)
  1. HUMIRA [Suspect]
     Indication: RHEUMATOID ARTHRITIS
     Route: 058
     Dates: start: 201306, end: 201306
  2. METFORMIN [Concomitant]
     Indication: DIABETES MELLITUS
  3. NAPROXEN [Concomitant]
     Indication: INFLAMMATION
     Route: 048

REACTIONS (1)
  - Nasopharyngitis [Recovered/Resolved]
